FAERS Safety Report 19213312 (Version 1)
Quarter: 2021Q2

REPORT INFORMATION
  Report Type: Spontaneous
  Country: US (occurrence: US)
  Receive Date: 20210504
  Receipt Date: 20210504
  Transmission Date: 20210717
  Serious: Yes (Death, Other)
  Sender: FDA-Public Use
  Company Number: NVSC2021US100494

PATIENT
  Age: 63 Year
  Sex: Male

DRUGS (4)
  1. RANITIDINE. [Suspect]
     Active Substance: RANITIDINE
     Indication: GASTROOESOPHAGEAL REFLUX DISEASE
     Dosage: 150 ? 300 MG, QD
     Route: 065
     Dates: start: 200005, end: 201312
  2. RANITIDINE. [Suspect]
     Active Substance: RANITIDINE
     Indication: DYSPEPSIA
  3. RANITIDINE. [Suspect]
     Active Substance: RANITIDINE
     Indication: DYSPEPSIA
  4. RANITIDINE. [Suspect]
     Active Substance: RANITIDINE
     Indication: GASTROOESOPHAGEAL REFLUX DISEASE
     Dosage: 150 ? 300 MG, QD
     Route: 065
     Dates: start: 200005, end: 201312

REACTIONS (5)
  - Oesophageal carcinoma [Unknown]
  - Lung neoplasm malignant [Fatal]
  - Gastric cancer [Fatal]
  - Gastrointestinal carcinoma [Fatal]
  - Small intestine carcinoma [Fatal]

NARRATIVE: CASE EVENT DATE: 20130101
